FAERS Safety Report 14187264 (Version 1)
Quarter: 2017Q4

REPORT INFORMATION
  Report Type: Spontaneous
  Country: FR (occurrence: FR)
  Receive Date: 20171114
  Receipt Date: 20171114
  Transmission Date: 20180321
  Serious: Yes (Life-Threatening, Hospitalization)
  Sender: FDA-Public Use
  Company Number: FR-ACCORD-060982

PATIENT
  Age: 63 Year
  Sex: Male

DRUGS (10)
  1. LANSOPRAZOLE. [Concomitant]
     Active Substance: LANSOPRAZOLE
  2. ALPRAZOLAM. [Concomitant]
     Active Substance: ALPRAZOLAM
  3. CALCIUM CARBONATE/CALCIUM LACTOGLUCONATE [Concomitant]
  4. NEFOPAM [Concomitant]
     Active Substance: NEFOPAM
  5. ALUMINIUM HYDROXIDE/MAGNESIUM HYDROXIDE [Concomitant]
  6. FLUOROURACIL ACCORD [Suspect]
     Active Substance: FLUOROURACIL
     Indication: TONSIL CANCER
     Route: 042
     Dates: start: 20170724, end: 20170727
  7. TAXOTERE [Suspect]
     Active Substance: DOCETAXEL
     Indication: TONSIL CANCER
     Route: 042
     Dates: start: 20170725
  8. PARACETAMOL [Concomitant]
     Active Substance: ACETAMINOPHEN
  9. CISPLATIN MYLAN [Suspect]
     Active Substance: CISPLATIN
     Indication: TONSIL CANCER
     Route: 042
     Dates: start: 20170725
  10. TRAMADOL. [Concomitant]
     Active Substance: TRAMADOL

REACTIONS (4)
  - Thrombocytopenia [Recovered/Resolved]
  - Diarrhoea [Recovered/Resolved]
  - Mucosal inflammation [Recovered/Resolved]
  - Febrile neutropenia [Recovered/Resolved]

NARRATIVE: CASE EVENT DATE: 20170731
